FAERS Safety Report 23497976 (Version 1)
Quarter: 2024Q1

REPORT INFORMATION
  Report Type: Spontaneous
  Country: US (occurrence: None)
  Receive Date: 20240207
  Receipt Date: 20240207
  Transmission Date: 20240409
  Serious: No
  Sender: FDA-Public Use
  Company Number: US-ROCHE-3315817

PATIENT

DRUGS (2)
  1. XOLAIR [Suspect]
     Active Substance: OMALIZUMAB
     Indication: Urticaria chronic
     Dosage: UNKNOWN
     Route: 065
     Dates: start: 202202
  2. XOLAIR [Suspect]
     Active Substance: OMALIZUMAB
     Indication: Angioedema

REACTIONS (6)
  - Endometriosis [Unknown]
  - Abdominal distension [Unknown]
  - Abdominal distension [Unknown]
  - Uterine pain [Unknown]
  - Fatigue [Unknown]
  - Pelvic pain [Unknown]

NARRATIVE: CASE EVENT DATE: 20220701
